FAERS Safety Report 7902879-5 (Version None)
Quarter: 2011Q4

REPORT INFORMATION
  Report Type: 
  Country: None (occurrence: None)
  Receive Date: 20111107
  Receipt Date: 20111026
  Transmission Date: 20120403
  Serious: Yes (Hospitalization)
  Sender: FDA-Public Use
  Company Number: 2011CP000176

PATIENT
  Age: 18 Year
  Sex: Female

DRUGS (7)
  1. SOLU-MEDROL [Suspect]
     Indication: PREMEDICATION
     Dosage: 1 MG/KG;
     Dates: start: 20110928, end: 20110101
  2. LAMICTAL [Concomitant]
  3. ACETAMINOPHEN [Suspect]
     Indication: PREMEDICATION
     Dosage: 1 GRAM;	IV
     Route: 042
     Dates: start: 20110928, end: 20110101
  4. VALPROATE SODIUM [Concomitant]
  5. URBANYL [Concomitant]
  6. RITUXAN [Suspect]
     Indication: IDIOPATHIC THROMBOCYTOPENIC PURPURA
     Dosage: 375 MG/M**2;
     Dates: start: 20110928, end: 20110101
  7. POLARAMINE [Suspect]
     Indication: PREMEDICATION
     Dosage: 1 DOSAGE FORM;
     Dates: start: 20110928, end: 20110101

REACTIONS (2)
  - CONVULSION [None]
  - INFUSION RELATED REACTION [None]
